FAERS Safety Report 7590769-X (Version None)
Quarter: 2011Q3

REPORT INFORMATION
  Report Type: 
  Country: None (occurrence: None)
  Receive Date: 20110705
  Receipt Date: 20110622
  Transmission Date: 20111222
  Serious: Yes (Hospitalization, Other)
  Sender: FDA-Public Use
  Company Number: PHHY2011AU49264

PATIENT
  Sex: Female

DRUGS (15)
  1. SPIRIVA [Concomitant]
     Dosage: 1 DF, UNK
  2. NEO-B12 [Concomitant]
  3. DURO-K [Concomitant]
  4. ZOLEDRONIC ACID [Suspect]
     Indication: OSTEOPOROSIS
     Dosage: 5 MG, UNK
     Route: 042
     Dates: start: 20110506
  5. TRIMETHOPRIM [Concomitant]
  6. SOLPRIN [Concomitant]
     Dosage: 0.5 DF, UNK
  7. ALDOMET [Concomitant]
     Dosage: 2 DF, TID
  8. CALTRATE +D [Concomitant]
     Dosage: 2 DF, UNK
  9. EXFORGE [Concomitant]
     Dosage: 1 DF, UNK
  10. FERRO-GRADUMET [Concomitant]
     Dosage: 1 DF, UNK
  11. INDAPAMIDE [Concomitant]
  12. PANTOPRAZOLE [Concomitant]
     Dosage: 1 DF, UNK
  13. ASPIRIN [Concomitant]
     Dosage: 1 DF, UNK
  14. MYSOLINE [Concomitant]
     Dosage: 1 DF, BID
  15. SERCTIDE ACCUHALER [Concomitant]

REACTIONS (5)
  - ALANINE AMINOTRANSFERASE INCREASED [None]
  - LIVER FUNCTION TEST ABNORMAL [None]
  - BLOOD ALKALINE PHOSPHATASE INCREASED [None]
  - ASPARTATE AMINOTRANSFERASE INCREASED [None]
  - GAMMA-GLUTAMYLTRANSFERASE INCREASED [None]
